FAERS Safety Report 8489454-1 (Version None)
Quarter: 2012Q2

REPORT INFORMATION
  Report Type: 
  Country: None (occurrence: None)
  Receive Date: 20120628
  Receipt Date: 20120628
  Transmission Date: 20120825
  Serious: Yes (Other)
  Sender: FDA-Public Use
  Company Number: None

PATIENT
  Sex: Male

DRUGS (14)
  1. ASPIRIN [Concomitant]
  2. DELTAZIM [Concomitant]
  3. CO-Q-10 [Concomitant]
  4. ESTERC [Concomitant]
  5. MOBIC [Concomitant]
  6. OMEPRAZOLE [Concomitant]
  7. COLACE [Concomitant]
  8. LESINOPRIL [Concomitant]
  9. LAVAZA [Concomitant]
  10. LOVASTATIN [Concomitant]
  11. CLOPIDOGREL [Suspect]
     Indication: VASCULAR GRAFT
     Dosage: 75 MG ONCE A DAY PO
     Route: 048
     Dates: start: 20120529, end: 20120626
  12. CLOPIDOGREL [Suspect]
     Indication: ANTICOAGULANT THERAPY
     Dosage: 75 MG ONCE A DAY PO
     Route: 048
     Dates: start: 20120529, end: 20120626
  13. TRICAR [Concomitant]
  14. COMPLETE VITAMINS [Concomitant]

REACTIONS (6)
  - HEADACHE [None]
  - THINKING ABNORMAL [None]
  - AMNESIA [None]
  - VISION BLURRED [None]
  - VISUAL ACUITY REDUCED [None]
  - INADEQUATE ANALGESIA [None]
